FAERS Safety Report 17186259 (Version 1)
Quarter: 2019Q4

REPORT INFORMATION
  Report Type: Spontaneous
  Country: US (occurrence: US)
  Receive Date: 20191220
  Receipt Date: 20191220
  Transmission Date: 20200122
  Serious: Yes (Hospitalization)
  Sender: FDA-Public Use
  Company Number: US-ALLERGAN-1945441US

PATIENT
  Sex: Female

DRUGS (1)
  1. LILETTA [Suspect]
     Active Substance: LEVONORGESTREL
     Indication: CONTRACEPTION
     Dosage: 52 MG, SINGLE
     Route: 015
     Dates: start: 20191031, end: 20191101

REACTIONS (7)
  - Septic shock [Recovering/Resolving]
  - Vaginal discharge [Unknown]
  - Vomiting [Recovering/Resolving]
  - Pelvic pain [Recovering/Resolving]
  - Nausea [Recovering/Resolving]
  - Pelvic abscess [Recovering/Resolving]
  - Pyrexia [Unknown]

NARRATIVE: CASE EVENT DATE: 20191101
